FAERS Safety Report 13645251 (Version 1)
Quarter: 2017Q2

REPORT INFORMATION
  Report Type: Spontaneous
  Country: US (occurrence: US)
  Receive Date: 20170612
  Receipt Date: 20170612
  Transmission Date: 20170830
  Serious: No
  Sender: FDA-Public Use
  Company Number: US-ROCHE-1399108

PATIENT
  Sex: Female

DRUGS (1)
  1. XELODA [Suspect]
     Active Substance: CAPECITABINE
     Indication: PRODUCT USED FOR UNKNOWN INDICATION
     Dosage: TWICE DAILY FOR 14 DAYS ON 7 DAYS OFF.?THE PATIENT RECEIVED SAME DOSE ON 10/MAY/2014
     Route: 048
     Dates: start: 20140415

REACTIONS (5)
  - Constipation [Not Recovered/Not Resolved]
  - Nausea [Recovering/Resolving]
  - Erythema [Unknown]
  - Abdominal pain upper [Recovering/Resolving]
  - Pain in extremity [Unknown]
